FAERS Safety Report 24071560 (Version 1)
Quarter: 2024Q3

REPORT INFORMATION
  Report Type: Report from Study
  Country: JP (occurrence: JP)
  Receive Date: 20240710
  Receipt Date: 20240710
  Transmission Date: 20241016
  Serious: No
  Sender: ROCHE
  Company Number: JP-CHUGAI-2022040514

PATIENT
  Age: 29 Year
  Sex: Male
  Weight: 29.6 kg

DRUGS (6)
  1. EVRYSDI [Suspect]
     Active Substance: RISDIPLAM
     Indication: Spinal muscular atrophy
     Dosage: UNK
     Route: 048
     Dates: start: 20220112
  2. CLOTIAZEPAM [Concomitant]
     Active Substance: CLOTIAZEPAM
     Dosage: UNK
  3. SULPIRIDE [Concomitant]
     Active Substance: SULPIRIDE
     Dosage: UNK
  4. PRANLUKAST [Concomitant]
     Active Substance: PRANLUKAST
     Dosage: UNK
  5. PROCATEROL HYDROCHLORIDE [Concomitant]
     Active Substance: PROCATEROL HYDROCHLORIDE
     Dosage: UNK
  6. GASTER [Concomitant]
     Active Substance: FAMOTIDINE
     Dosage: UNK

REACTIONS (2)
  - Erythema annulare [Recovering/Resolving]
  - Eczema [Recovering/Resolving]

NARRATIVE: CASE EVENT DATE: 20220420
